FAERS Safety Report 14553439 (Version 4)
Quarter: 2018Q1

REPORT INFORMATION
  Report Type: Spontaneous
  Country: FR (occurrence: FR)
  Receive Date: 20180220
  Receipt Date: 20180228
  Transmission Date: 20180509
  Serious: Yes (Hospitalization, Other)
  Sender: FDA-Public Use
  Company Number: FR-TEVA-2018-FR-858084

PATIENT
  Age: 62 Year
  Sex: Male

DRUGS (19)
  1. PREDNISOLONE. [Suspect]
     Active Substance: PREDNISOLONE
     Route: 065
  2. PARACETAMOL [Suspect]
     Active Substance: ACETAMINOPHEN
     Route: 065
  3. HALOPERIDOL. [Suspect]
     Active Substance: HALOPERIDOL
     Route: 065
  4. CETIRIZINE [Suspect]
     Active Substance: CETIRIZINE HYDROCHLORIDE
     Route: 065
  5. HYDROXYZINE [Suspect]
     Active Substance: HYDROXYZINE HYDROCHLORIDE
     Route: 065
  6. BROMAZEPAM [Suspect]
     Active Substance: BROMAZEPAM
     Route: 065
  7. VENLAFAXINE [Suspect]
     Active Substance: VENLAFAXINE HYDROCHLORIDE
     Route: 065
  8. PANTOPRAZOLE [Suspect]
     Active Substance: PANTOPRAZOLE
     Route: 065
  9. LAUDANOSINE [Suspect]
     Active Substance: ATRACURIUM
     Route: 065
  10. OXAZEPAM. [Suspect]
     Active Substance: OXAZEPAM
     Route: 065
  11. ALPRAZOLAM. [Suspect]
     Active Substance: ALPRAZOLAM
     Route: 065
  12. CYAMEMAZINE [Suspect]
     Active Substance: CYAMEMAZINE
     Indication: AGITATION
     Route: 065
  13. AMITRIPTYLINE [Suspect]
     Active Substance: AMITRIPTYLINE
     Route: 065
  14. URAPIDIL [Suspect]
     Active Substance: URAPIDIL
     Route: 065
  15. CLONAZEPAM. [Suspect]
     Active Substance: CLONAZEPAM
     Route: 065
  16. ZOLPIDEM [Suspect]
     Active Substance: ZOLPIDEM\ZOLPIDEM TARTRATE
     Indication: INSOMNIA
     Route: 065
  17. NORDIAZEPAM [Suspect]
     Active Substance: NORDAZEPAM
     Route: 065
  18. VERAPAMIL [Suspect]
     Active Substance: VERAPAMIL HYDROCHLORIDE
     Route: 065
  19. MIDAZOLAM [Suspect]
     Active Substance: MIDAZOLAM HYDROCHLORIDE
     Indication: SEDATION
     Route: 065

REACTIONS (11)
  - Lung disorder [Recovering/Resolving]
  - Acute respiratory distress syndrome [Recovering/Resolving]
  - Drug diversion [Unknown]
  - Disturbance in attention [Recovering/Resolving]
  - Septic shock [Recovering/Resolving]
  - Tachycardia [Recovering/Resolving]
  - Victim of homicide [Recovering/Resolving]
  - Hyperthermia [Recovering/Resolving]
  - Hypotension [Recovering/Resolving]
  - Altered state of consciousness [Recovering/Resolving]
  - Coma [Recovering/Resolving]
